FAERS Safety Report 11031631 (Version 1)
Quarter: 2015Q2

REPORT INFORMATION
  Report Type: Spontaneous
  Country: US (occurrence: US)
  Receive Date: 20150415
  Receipt Date: 20150415
  Transmission Date: 20150821
  Serious: No
  Sender: FDA-Public Use
  Company Number: US-SA-2014SA164994

PATIENT
  Age: 50 Year
  Sex: Female
  Weight: 77.1 kg

DRUGS (18)
  1. DEMEROL [Suspect]
     Active Substance: MEPERIDINE HYDROCHLORIDE
     Indication: PRODUCT USED FOR UNKNOWN INDICATION
     Route: 065
  2. PULMICORT TURBUHALER [Concomitant]
     Active Substance: BUDESONIDE
     Dosage: 1 MG/2M1 TWICE DAILY
  3. VITAMIN C [Concomitant]
     Active Substance: ASCORBIC ACID
  4. TESSALON [Concomitant]
     Active Substance: BENZONATATE
  5. HYDROCORTISONE. [Concomitant]
     Active Substance: HYDROCORTISONE
     Dosage: 7.5 MG IN THE MORNING AND 5 MG IN THE EVENING,
  6. LACTOBACILLUS ACIDOPHILUS/LACTOBACILLUS BULGARICUS [Concomitant]
  7. CLARITIN [Concomitant]
     Active Substance: LORATADINE
  8. ZITHROMAX [Concomitant]
     Active Substance: AZITHROMYCIN DIHYDRATE
     Route: 048
  9. VITAMIN B12 [Concomitant]
     Active Substance: CYANOCOBALAMIN
     Dosage: 3 TIMES WEEKLY
  10. EVISTA [Concomitant]
     Active Substance: RALOXIFENE HYDROCHLORIDE
  11. VITAMIN D3 [Concomitant]
     Active Substance: CHOLECALCIFEROL
  12. ADVAIR DISKUS [Concomitant]
     Active Substance: FLUTICASONE PROPIONATE\SALMETEROL XINAFOATE
     Dosage: 230/21 TWICE DAILY
  13. NASONEX [Concomitant]
     Active Substance: MOMETASONE FUROATE
     Dosage: 2 SQUIRTS TO BOTH NOSTRILS DAILY
  14. DUONEB [Concomitant]
     Active Substance: ALBUTEROL SULFATE\IPRATROPIUM BROMIDE
     Dosage: 0.5MG/3ML TWICE DAILY AND AS NEEDED
  15. PRILOSEC [Concomitant]
     Active Substance: OMEPRAZOLE MAGNESIUM
  16. ZANTAC [Concomitant]
     Active Substance: RANITIDINE HYDROCHLORIDE
  17. CALCIUM [Concomitant]
     Active Substance: CALCIUM
  18. METHYLPREDNISOLONE SODIUM SUCCINATE. [Concomitant]
     Active Substance: METHYLPREDNISOLONE SODIUM SUCCINATE

REACTIONS (1)
  - Hypersensitivity [Unknown]
